FAERS Safety Report 17134248 (Version 1)
Quarter: 2019Q4

REPORT INFORMATION
  Report Type: Spontaneous
  Country: US (occurrence: US)
  Receive Date: 20191118
  Receipt Date: 20191118
  Transmission Date: 20200122
  Serious: Yes (Hospitalization)
  Sender: FDA-Public Use
  Company Number: None

PATIENT
  Sex: Female

DRUGS (7)
  1. AUG BETAMET [Concomitant]
  2. FLUTICASONE. [Concomitant]
     Active Substance: FLUTICASONE
  3. LOSARTAN POT [Concomitant]
     Active Substance: LOSARTAN POTASSIUM
  4. PAROXETINE. [Concomitant]
     Active Substance: PAROXETINE
  5. COSENTYX [Suspect]
     Active Substance: SECUKINUMAB
     Indication: PSORIASIS
     Route: 058
     Dates: start: 20190522
  6. RANITIDINE. [Concomitant]
     Active Substance: RANITIDINE
  7. ATORVASTASTIN [Concomitant]

REACTIONS (2)
  - Condition aggravated [None]
  - Rash [None]
